FAERS Safety Report 9688068 (Version 2)
Quarter: 2021Q4

REPORT INFORMATION
  Report Type: Spontaneous
  Country: DK (occurrence: DK)
  Receive Date: 20131114
  Receipt Date: 20211207
  Transmission Date: 20220303
  Serious: Yes (Death, Life-Threatening, Hospitalization, Other)
  Sender: FDA-Public Use
  Company Number: DK-MYLANLABS-2013S1024961

PATIENT
  Age: 30 Year
  Sex: Female

DRUGS (5)
  1. TRANEXAMIC ACID [Suspect]
     Active Substance: TRANEXAMIC ACID
     Indication: Heavy menstrual bleeding
     Dosage: 1 G,TID
     Route: 065
  2. RETEPLASE [Suspect]
     Active Substance: RETEPLASE
     Indication: Thrombolysis
     Dosage: 10 INTERNATIONAL UNIT,ONCE
     Route: 065
  3. PERLUTEX [Concomitant]
     Indication: Heavy menstrual bleeding
     Dosage: 1 DF,BID
     Route: 048
  4. METHYLPHENIDATE [Concomitant]
     Active Substance: METHYLPHENIDATE
     Indication: Product used for unknown indication
     Dosage: 10 MG,BID
     Route: 065
  5. LAMOTRIGINE [Concomitant]
     Active Substance: LAMOTRIGINE
     Indication: Product used for unknown indication
     Dosage: 100 MG,QD
     Route: 065

REACTIONS (7)
  - Cardiac arrest [Fatal]
  - Pulmonary embolism [Fatal]
  - Internal haemorrhage [Fatal]
  - Dyspnoea [Fatal]
  - Hyperventilation [Fatal]
  - Malaise [Fatal]
  - Pallor [Fatal]
